FAERS Safety Report 8060773 (Version 4)
Quarter: 2015Q1

REPORT INFORMATION
  Report Type: Spontaneous
  Country: CN (occurrence: CN)
  Receive Date: 20110729
  Receipt Date: 20150127
  Transmission Date: 20150721
  Serious: Yes (Death, Other)
  Sender: FDA-Public Use
  Company Number: CN-PFIZER INC-2011168948

PATIENT
  Age: 64 Year
  Sex: Male

DRUGS (6)
  1. VITAMIN C [Concomitant]
     Active Substance: ASCORBIC ACID
     Dosage: 2 G, 1X/DAY
     Dates: start: 200405
  2. COENZYME A [Concomitant]
     Active Substance: COENZYME A
     Dosage: 100 IU, 1X/DAY
     Dates: start: 200405
  3. CEFOPERAZONE SODIUM [Suspect]
     Active Substance: CEFOPERAZONE SODIUM
     Indication: CORONARY ARTERY DISEASE
  4. ADENOSINE TRIPHOSPHATE [Concomitant]
     Active Substance: ADENOSINE TRIPHOSPHATE
     Dosage: 40 MG, 1X/DAY
     Dates: start: 200405
  5. CEFOTAXIME SODIUM [Concomitant]
     Active Substance: CEFOTAXIME SODIUM
     Indication: UPPER RESPIRATORY TRACT INFECTION
     Dosage: 2 G, 1X/DAY
     Dates: start: 200405, end: 200405
  6. CEFOPERAZONE SODIUM [Suspect]
     Active Substance: CEFOPERAZONE SODIUM
     Indication: UPPER RESPIRATORY TRACT INFECTION
     Dosage: 2 G, 2X/DAY
     Route: 041
     Dates: start: 20040522, end: 20040522

REACTIONS (2)
  - Anaphylactic shock [Fatal]
  - Respiratory failure [Fatal]

NARRATIVE: CASE EVENT DATE: 20040522
